FAERS Safety Report 25106189 (Version 1)
Quarter: 2025Q1

REPORT INFORMATION
  Report Type: Spontaneous
  Country: US (occurrence: None)
  Receive Date: 20250320
  Receipt Date: 20250320
  Transmission Date: 20250409
  Serious: Yes (Hospitalization)
  Sender: FDA-CTU
  Company Number: None

PATIENT
  Age: 78 Year
  Sex: Male
  Weight: 90 kg

DRUGS (5)
  1. METOPROLOL SUCCINATE [Suspect]
     Active Substance: METOPROLOL SUCCINATE
     Indication: Angina unstable
     Dosage: FREQUENCY : DAILY;?
     Route: 048
     Dates: start: 20241219, end: 20241227
  2. ISOSORBIDE MONONITRATE [Suspect]
     Active Substance: ISOSORBIDE MONONITRATE
     Dosage: FREQUENCY : DAILY;?
     Route: 048
     Dates: start: 20241219, end: 20241227
  3. LISINOPRIL [Suspect]
     Active Substance: LISINOPRIL
  4. FUROSEMIDE [Suspect]
     Active Substance: FUROSEMIDE
  5. AMLODIPINE [Suspect]
     Active Substance: AMLODIPINE BESYLATE

REACTIONS (2)
  - Hypotension [None]
  - Acute kidney injury [None]

NARRATIVE: CASE EVENT DATE: 20241227
